FAERS Safety Report 9249018 (Version 1)
Quarter: 2013Q1

REPORT INFORMATION
  Report Type: Spontaneous
  Country: US (occurrence: None)
  Receive Date: 20130305
  Receipt Date: 20130305
  Transmission Date: 20140127
  Serious: Yes (Hospitalization)
  Sender: FDA-Public Use
  Company Number: 163-21880-12053233

PATIENT
  Age: 34 Year
  Sex: Male
  Weight: 80.74 kg

DRUGS (7)
  1. REVLIMID [Suspect]
     Route: 048
     Dates: start: 20120101, end: 201205
  2. XANAX(ALPRAZOLAM) (UNKNOWN) [Concomitant]
  3. DOXYCYCLINE(DOXYCYCLINE) (UNKNOWN) [Concomitant]
  4. ZOFRAN(ONDANSETRON HYDROCHLORIDE) (UNKNOWN) [Concomitant]
  5. ETOPOSIDE(ETOPOSIDE) (UNKNOWN) [Concomitant]
  6. OXYCODONE(OXYCODONE) (UNKNOWN) [Concomitant]
  7. OXYCONTIN(OXYCODONE HYDROCHLORIDE) (UNKNOWN) [Concomitant]

REACTIONS (5)
  - Migraine [None]
  - Pyrexia [None]
  - Chills [None]
  - Vomiting [None]
  - Dizziness [None]
